FAERS Safety Report 7815058-7 (Version None)
Quarter: 2011Q4

REPORT INFORMATION
  Report Type: 
  Country: None (occurrence: None)
  Receive Date: 20111014
  Receipt Date: 20111013
  Transmission Date: 20120403
  Serious: Yes (Death, Hospitalization)
  Sender: FDA-Public Use
  Company Number: PL-CEPHALON-2010005298

PATIENT
  Sex: Male
  Weight: 95 kg

DRUGS (8)
  1. XELODA [Concomitant]
     Dates: start: 20090504
  2. PRAMOLAN [Concomitant]
     Dates: start: 20090804
  3. AMLODIPINE [Concomitant]
  4. METOCLOPRAMIDE [Concomitant]
     Dates: start: 20090904
  5. DURAGESIC-100 [Concomitant]
     Dates: start: 20090217
  6. FENTANYL CITRATE [Suspect]
     Indication: BREAKTHROUGH PAIN
     Route: 002
     Dates: start: 20091210, end: 20101022
  7. ACETAMINOPHEN [Concomitant]
  8. ZOFRAN [Concomitant]

REACTIONS (2)
  - ILEUS [None]
  - COLON CANCER [None]
